FAERS Safety Report 15526865 (Version 2)
Quarter: 2018Q4

REPORT INFORMATION
  Report Type: Spontaneous
  Country: GB (occurrence: FR)
  Receive Date: 20181018
  Receipt Date: 20181116
  Transmission Date: 20190205
  Serious: Yes (Hospitalization)
  Sender: FDA-Public Use
  Company Number: FR-FRESENIUS KABI-FK201810652

PATIENT
  Age: 68 Year
  Sex: Male
  Weight: 115 kg

DRUGS (2)
  1. OXALIPLATIN (MANUFACTURER UNKNOWN) [Suspect]
     Active Substance: OXALIPLATIN
     Indication: OESOPHAGEAL ADENOCARCINOMA
     Route: 042
     Dates: start: 20180816
  2. RALTITREXED [Suspect]
     Active Substance: RALTITREXED
     Indication: OESOPHAGEAL ADENOCARCINOMA
     Route: 042
     Dates: start: 20180816

REACTIONS (1)
  - Enteritis [Not Recovered/Not Resolved]

NARRATIVE: CASE EVENT DATE: 20180821
